FAERS Safety Report 23079014 (Version 1)
Quarter: 2023Q4

REPORT INFORMATION
  Report Type: Spontaneous
  Country: US (occurrence: US)
  Receive Date: 20231018
  Receipt Date: 20231018
  Transmission Date: 20240109
  Serious: Yes (Death, Hospitalization)
  Sender: FDA-Public Use
  Company Number: US-MYLANLABS-2023M1108966

PATIENT
  Age: 68 Year
  Sex: Male

DRUGS (4)
  1. CLINDAMYCIN [Suspect]
     Active Substance: CLINDAMYCIN
     Indication: Clostridial infection
     Dosage: 600 MILLIGRAM, Q8H
     Route: 065
  2. CLINDAMYCIN [Suspect]
     Active Substance: CLINDAMYCIN
     Indication: Clostridium bacteraemia
  3. PENICILLIN G [Suspect]
     Active Substance: PENICILLIN G
     Indication: Clostridial infection
     Dosage: 4 MILLION UNITS EVERY 4H, Q4H
     Route: 065
  4. PENICILLIN G [Suspect]
     Active Substance: PENICILLIN G
     Indication: Clostridium bacteraemia

REACTIONS (1)
  - Drug ineffective [Fatal]
